FAERS Safety Report 10657672 (Version 2)
Quarter: 2014Q4

REPORT INFORMATION
  Report Type: Spontaneous
  Country: US (occurrence: US)
  Receive Date: 20141217
  Receipt Date: 20141217
  Transmission Date: 20150529
  Serious: No
  Sender: FDA-Public Use
  Company Number: US-GLAXOSMITHKLINE-A1051473A

PATIENT

DRUGS (1)
  1. VOTRIENT [Suspect]
     Active Substance: PAZOPANIB HYDROCHLORIDE
     Indication: RENAL CANCER
     Dosage: 200 MG TABLETS; 4 TABLETS DAILY
     Route: 065

REACTIONS (8)
  - Fatigue [Unknown]
  - Vomiting [Unknown]
  - Skin discolouration [Unknown]
  - Nausea [Unknown]
  - Malaise [Unknown]
  - Liver function test abnormal [Unknown]
  - Asthenia [Unknown]
  - Hair colour changes [Unknown]
